FAERS Safety Report 7266521-1 (Version None)
Quarter: 2011Q1

REPORT INFORMATION
  Report Type: 
  Country: None (occurrence: None)
  Receive Date: 20110131
  Receipt Date: 20110125
  Transmission Date: 20110831
  Serious: Yes (Hospitalization, Other)
  Sender: FDA-Public Use
  Company Number: US-PFIZER INC-2010146098

PATIENT
  Sex: Female

DRUGS (24)
  1. VALIUM [Concomitant]
     Indication: ANXIETY
     Dosage: UNK
     Dates: start: 20020101, end: 20090101
  2. ROBAXIN [Concomitant]
     Indication: BACK PAIN
     Dosage: UNK
     Dates: start: 20030101, end: 20090101
  3. NEURONTIN [Concomitant]
     Indication: MUSCLE SPASMS
  4. METOPROLOL [Concomitant]
     Indication: HYPERTENSION
     Dosage: UNK
     Dates: start: 20060101, end: 20090101
  5. CHANTIX [Suspect]
     Dosage: UNK
     Dates: start: 20081108, end: 20090201
  6. NEURONTIN [Concomitant]
     Indication: SCIATICA
     Dosage: UNK
     Dates: start: 20030101, end: 20090101
  7. NORCO [Concomitant]
     Indication: BACK PAIN
     Dosage: UNK
     Dates: start: 20030101, end: 20100101
  8. REQUIP [Concomitant]
     Indication: RESTLESS LEGS SYNDROME
     Dosage: UNK
     Dates: start: 20070101, end: 20090101
  9. ACTONEL [Concomitant]
     Indication: OSTEOPOROSIS
     Dosage: UNK
     Dates: start: 20050101, end: 20090101
  10. NITROFURANTOIN [Concomitant]
     Indication: URINARY TRACT INFECTION
  11. VICODIN [Concomitant]
     Indication: SCIATICA
  12. ATARAX [Concomitant]
     Indication: ANXIETY
     Dosage: UNK
     Dates: start: 20030101, end: 20090101
  13. ULTRAM [Concomitant]
     Indication: BACK PAIN
     Dosage: UNK
     Dates: start: 20050101, end: 20090101
  14. NITROFURANTOIN [Concomitant]
     Indication: ANTIBIOTIC THERAPY
     Dosage: UNK
     Dates: start: 20090101, end: 20090101
  15. XOPENEX [Concomitant]
     Indication: CHRONIC OBSTRUCTIVE PULMONARY DISEASE
     Dosage: UNK
     Dates: start: 20090101, end: 20090101
  16. VICODIN [Concomitant]
     Indication: CELLULITIS
     Dosage: UNK
     Dates: start: 20010101, end: 20090101
  17. PREMARIN [Concomitant]
     Indication: HORMONE REPLACEMENT THERAPY
     Dosage: UNK
     Dates: start: 20010101
  18. LEVOTHYROXINE [Concomitant]
     Indication: HYPOTHYROIDISM
     Dosage: UNK
     Dates: start: 20060101
  19. TRICOR [Concomitant]
     Indication: BLOOD CHOLESTEROL INCREASED
     Dosage: UNK
     Dates: start: 20070101
  20. CHANTIX [Suspect]
     Indication: SMOKING CESSATION THERAPY
     Dosage: UNK
     Dates: start: 20061110, end: 20070510
  21. DOXYCYCLINE [Concomitant]
     Indication: ANTIBIOTIC THERAPY
     Dosage: UNK
     Dates: start: 20020101, end: 20090101
  22. CAPOTEN [Concomitant]
     Indication: HYPERTENSION
     Dosage: UNK
     Dates: start: 20050101, end: 20090101
  23. ATIVAN [Concomitant]
     Indication: ANXIETY
     Dosage: UNK
     Dates: start: 20020101, end: 20090101
  24. OXYCONTIN [Concomitant]
     Indication: BACK PAIN
     Dosage: UNK
     Dates: start: 20040101, end: 20090101

REACTIONS (8)
  - MUSCLE SPASMS [None]
  - LOSS OF CONSCIOUSNESS [None]
  - FRACTURED SACRUM [None]
  - LUMBAR VERTEBRAL FRACTURE [None]
  - FRACTURED COCCYX [None]
  - ANXIETY [None]
  - DISCOMFORT [None]
  - CONVULSION [None]
